FAERS Safety Report 5551205-8 (Version None)
Quarter: 2007Q4

REPORT INFORMATION
  Report Type: 
  Country: None (occurrence: None)
  Receive Date: 20071127
  Receipt Date: 20070705
  Transmission Date: 20080405
  Serious: Yes (Other)
  Sender: FDA-Public Use
  Company Number: CHPA2007US07474

PATIENT
  Sex: Female

DRUGS (5)
  1. NICOTINE [Suspect]
     Indication: SMOKING CESSATION THERAPY
     Dosage: 21 MG, QD, TRANSDERMAL; 14 MG,QD,TRANSDERMAL; 7 MG, QD, TRANSDERMAL
     Route: 062
  2. LOXAPINE [Concomitant]
  3. SALSALATE (SALSALATE) [Concomitant]
  4. MECLIZINE [Concomitant]
  5. ALL OTHER THERAPEUTIC PRODUCTS (NO INGREDIENTS/SUBSTANCES) [Concomitant]

REACTIONS (4)
  - BALANCE DISORDER [None]
  - DISORIENTATION [None]
  - JOINT SWELLING [None]
  - TOBACCO WITHDRAWAL SYMPTOMS [None]
